FAERS Safety Report 4330984-1 (Version None)
Quarter: 2004Q1

REPORT INFORMATION
  Report Type: 
  Country: None (occurrence: None)
  Receive Date: 20040329
  Receipt Date: 20040318
  Transmission Date: 20041129
  Serious: Yes (Other)
  Sender: FDA-Public Use
  Company Number: HQWYE767812MAR04

PATIENT
  Sex: Female

DRUGS (3)
  1. EFFEXOR XR [Suspect]
     Indication: MAJOR DEPRESSION
     Dosage: 150 MG 1X PER 1 DAY; ORAL
     Route: 048
  2. ZYPREXA [Concomitant]
  3. VALPROATE SODIUM [Concomitant]

REACTIONS (2)
  - ASTHENIA [None]
  - DRUG WITHDRAWAL SYNDROME [None]
